FAERS Safety Report 12010578 (Version 2)
Quarter: 2016Q2

REPORT INFORMATION
  Report Type: Spontaneous
  Country: CH (occurrence: CH)
  Receive Date: 20160205
  Receipt Date: 20160420
  Transmission Date: 20160815
  Serious: Yes (Hospitalization)
  Sender: FDA-Public Use
  Company Number: CH-TEVA-630662ISR

PATIENT
  Age: 74 Year
  Sex: Female

DRUGS (5)
  1. FENTANYL. [Suspect]
     Active Substance: FENTANYL
     Indication: PAIN
     Dosage: PCA 240MCG IN THE LAST 24 HOURS (OF THE REPORTING DATE)
     Route: 065
  2. TAPENTADOL [Suspect]
     Active Substance: TAPENTADOL
     Indication: PAIN
     Dosage: 200 MILLIGRAM DAILY;
     Route: 065
  3. OXYCODONE [Suspect]
     Active Substance: OXYCODONE
     Indication: PAIN
     Dosage: 60 MILLIGRAM DAILY;
     Route: 065
  4. TRAMADOL. [Suspect]
     Active Substance: TRAMADOL
     Indication: PAIN
     Dosage: 75 MILLIGRAM DAILY;
     Route: 065
  5. DUROGESIC [Suspect]
     Active Substance: FENTANYL
     Indication: PAIN
     Dosage: 1 DF = 25 MCG/H
     Route: 065

REACTIONS (4)
  - Radicular syndrome [Unknown]
  - Condition aggravated [Unknown]
  - Spinal column stenosis [Unknown]
  - Product use issue [Unknown]
